FAERS Safety Report 14168912 (Version 1)
Quarter: 2017Q4

REPORT INFORMATION
  Report Type: Spontaneous
  Country: US (occurrence: US)
  Receive Date: 20171107
  Receipt Date: 20171107
  Transmission Date: 20180321
  Serious: No
  Sender: FDA-Public Use
  Company Number: US-BAUSCH-BL-2017-027043

PATIENT
  Age: 65 Year
  Sex: Female

DRUGS (2)
  1. UCERIS [Suspect]
     Active Substance: BUDESONIDE
     Indication: COLITIS MICROSCOPIC
     Route: 065
     Dates: start: 201707
  2. UCERIS [Suspect]
     Active Substance: BUDESONIDE
     Route: 065
     Dates: start: 20170910

REACTIONS (3)
  - Treatment noncompliance [Unknown]
  - Off label use [Not Recovered/Not Resolved]
  - Diarrhoea [Recovering/Resolving]

NARRATIVE: CASE EVENT DATE: 201707
